FAERS Safety Report 15711242 (Version 2)
Quarter: 2018Q4

REPORT INFORMATION
  Report Type: Spontaneous
  Country: FR (occurrence: FR)
  Receive Date: 20181211
  Receipt Date: 20181219
  Transmission Date: 20190205
  Serious: Yes (Death, Other)
  Sender: FDA-Public Use
  Company Number: FR-MYLANLABS-2018M1091436

PATIENT
  Age: 9 Month
  Sex: Male

DRUGS (1)
  1. DUROGESIC [Suspect]
     Active Substance: FENTANYL
     Indication: PRODUCT USED FOR UNKNOWN INDICATION
     Route: 048

REACTIONS (9)
  - Somnolence [Unknown]
  - Vomiting [Unknown]
  - Hepatic congestion [Not Recovered/Not Resolved]
  - Respiratory arrest [Fatal]
  - Brain oedema [Not Recovered/Not Resolved]
  - Accidental exposure to product by child [Fatal]
  - Accidental overdose [Fatal]
  - Toxicity to various agents [Fatal]
  - Pleural effusion [Not Recovered/Not Resolved]
